FAERS Safety Report 5915668-8 (Version None)
Quarter: 2008Q4

REPORT INFORMATION
  Report Type: 
  Country: None (occurrence: None)
  Receive Date: 20081010
  Receipt Date: 20080930
  Transmission Date: 20090506
  Serious: Yes (Other)
  Sender: FDA-Public Use
  Company Number: CA-PFIZER INC-2008082368

PATIENT
  Sex: Female

DRUGS (2)
  1. CELEBREX [Suspect]
     Indication: PAIN
  2. NAPROXEN [Suspect]

REACTIONS (4)
  - FOOT FRACTURE [None]
  - GASTRIC DISORDER [None]
  - KNEE ARTHROPLASTY [None]
  - VIRAL INFECTION [None]
